FAERS Safety Report 6251530-1 (Version None)
Quarter: 2009Q2

REPORT INFORMATION
  Report Type: 
  Country: None (occurrence: None)
  Receive Date: 20090626
  Receipt Date: 20090626
  Transmission Date: 20091009
  Serious: Yes (Other)
  Sender: FDA-Public Use
  Company Number: None

PATIENT
  Age: 43 Year
  Sex: Female

DRUGS (2)
  1. LEVETIRACETAM [Suspect]
     Indication: BRAIN NEOPLASM
     Dosage: 1000 MG BID PO
     Route: 048
     Dates: start: 20090526
  2. LEVETIRACETAM [Suspect]
     Indication: CONVULSION
     Dosage: 1000 MG BID PO
     Route: 048
     Dates: start: 20090526

REACTIONS (5)
  - ASTHENIA [None]
  - AURA [None]
  - CONVULSION [None]
  - DRUG EFFECT DECREASED [None]
  - PRODUCT SUBSTITUTION ISSUE [None]
